FAERS Safety Report 6191487-5 (Version None)
Quarter: 2009Q2

REPORT INFORMATION
  Report Type: 
  Country: None (occurrence: None)
  Receive Date: 20090515
  Receipt Date: 20090511
  Transmission Date: 20091009
  Serious: Yes (Hospitalization, Other)
  Sender: FDA-Public Use
  Company Number: JP-AVENTIS-200910281JP

PATIENT
  Age: 76 Year
  Sex: Male
  Weight: 73 kg

DRUGS (10)
  1. LANTUS [Suspect]
     Indication: DIABETES MELLITUS
     Dosage: DOSE: 12 UNITS
     Route: 058
     Dates: start: 20081001, end: 20081228
  2. NOVORAPID [Suspect]
     Indication: DIABETES MELLITUS
     Dosage: DOSE: 6 UNITS
     Dates: end: 20090130
  3. ALDACTONE [Concomitant]
     Route: 048
  4. OLMETEC [Concomitant]
     Indication: HYPERTENSION
     Route: 048
  5. ALOSITOL [Concomitant]
     Route: 048
  6. VASOLAN                            /00014302/ [Concomitant]
     Indication: ARRHYTHMIA
     Route: 048
  7. TAKEPRON [Concomitant]
     Indication: GASTRIC ULCER
     Route: 048
  8. WARFARIN SODIUM [Concomitant]
     Indication: ATRIAL FIBRILLATION
     Route: 048
  9. ASPIRIN [Concomitant]
     Indication: ANGINA PECTORIS
     Route: 048
     Dates: start: 20081121
  10. LOCHOL                             /00638501/ [Concomitant]
     Indication: ANGINA PECTORIS
     Route: 048
     Dates: start: 20081121

REACTIONS (3)
  - ANTI-INSULIN ANTIBODY POSITIVE [None]
  - HYPERGLYCAEMIA [None]
  - HYPOGLYCAEMIA [None]
